FAERS Safety Report 9843522 (Version 1)
Quarter: 2013Q4

REPORT INFORMATION
  Report Type: Spontaneous
  Country: US (occurrence: None)
  Receive Date: 20131219
  Receipt Date: 20131219
  Transmission Date: 20140711
  Serious: Yes (Other)
  Sender: FDA-Public Use
  Company Number: 163-20785-12072232

PATIENT
  Age: 71 Year
  Sex: Female

DRUGS (1)
  1. THALOMID (THALIDOMIDE) (100 MILLIGRAM, CAPSULES) [Suspect]
     Indication: PLASMA CELL MYELOMA
     Route: 048
     Dates: start: 20120427

REACTIONS (3)
  - Diarrhoea [None]
  - Unevaluable event [None]
  - Gastrointestinal infection [None]
